FAERS Safety Report 4675132-3 (Version None)
Quarter: 2005Q2

REPORT INFORMATION
  Report Type: 
  Country: None (occurrence: None)
  Receive Date: 20050526
  Receipt Date: 20050131
  Transmission Date: 20051028
  Serious: Yes (Hospitalization, Other)
  Sender: FDA-Public Use
  Company Number: US-MERCK-0502USA00115

PATIENT
  Age: 77 Year
  Sex: Female
  Weight: 75 kg

DRUGS (12)
  1. VIOXX [Suspect]
     Indication: OSTEOARTHRITIS
     Route: 048
     Dates: start: 20010701, end: 20020722
  2. VENTOLIN [Concomitant]
     Route: 065
  3. TRICOR [Concomitant]
     Route: 065
  4. CARTIA XT [Concomitant]
     Route: 065
     Dates: start: 20020101
  5. FUROSEMIDE [Concomitant]
     Route: 065
     Dates: start: 20020101
  6. AMBIEN [Concomitant]
     Route: 065
  7. PAXIL [Concomitant]
     Route: 065
  8. ASPIRIN [Concomitant]
     Route: 065
     Dates: start: 20020101
  9. ISOSORBIDE [Concomitant]
     Route: 065
  10. NITROGLYCERIN [Concomitant]
     Route: 065
  11. ACIPHEX [Concomitant]
     Route: 065
  12. ELAVIL [Concomitant]
     Route: 065

REACTIONS (20)
  - ANEURYSM [None]
  - ANGINA PECTORIS [None]
  - AORTIC ANEURYSM [None]
  - BLOOD CHOLESTEROL INCREASED [None]
  - BLOOD TRIGLYCERIDES INCREASED [None]
  - CARDIAC DISORDER [None]
  - CARDIAC FAILURE CONGESTIVE [None]
  - CAROTID ARTERY OCCLUSION [None]
  - CAROTID ARTERY STENOSIS [None]
  - DRUG HYPERSENSITIVITY [None]
  - DYSPNOEA [None]
  - EMOTIONAL DISTRESS [None]
  - GALLBLADDER DISORDER [None]
  - GASTRIC ULCER [None]
  - GASTROOESOPHAGEAL REFLUX DISEASE [None]
  - HEART RATE IRREGULAR [None]
  - MYOCARDIAL INFARCTION [None]
  - OEDEMA [None]
  - RENAL DISORDER [None]
  - TRANSIENT ISCHAEMIC ATTACK [None]
